FAERS Safety Report 6220722-X (Version None)
Quarter: 2009Q2

REPORT INFORMATION
  Report Type: 
  Country: None (occurrence: None)
  Receive Date: 20090610
  Receipt Date: 20090529
  Transmission Date: 20091009
  Serious: Yes (Hospitalization, Other)
  Sender: FDA-Public Use
  Company Number: PHHY2009IE16057

PATIENT
  Sex: Female

DRUGS (3)
  1. CLOZARIL [Suspect]
     Indication: SCHIZOPHRENIA
     Dosage: 150 MG, QD
     Route: 048
     Dates: start: 20090201
  2. CLOZARIL [Suspect]
     Dosage: 1050 MG, ONCE/SINGLE
     Route: 048
     Dates: start: 20090421
  3. CLOZARIL [Suspect]
     Dosage: 75 MG, UNK
     Route: 048
     Dates: start: 20090429

REACTIONS (8)
  - ATAXIA [None]
  - BODY TEMPERATURE INCREASED [None]
  - DISORIENTATION [None]
  - HEART RATE INCREASED [None]
  - OVERDOSE [None]
  - SOMNOLENCE [None]
  - TACHYCARDIA [None]
  - TREMOR [None]
